FAERS Safety Report 18499592 (Version 1)
Quarter: 2020Q4

REPORT INFORMATION
  Report Type: Spontaneous
  Country: DE (occurrence: DE)
  Receive Date: 20201113
  Receipt Date: 20201113
  Transmission Date: 20210114
  Serious: Yes (Hospitalization)
  Sender: FDA-Public Use
  Company Number: DE-TEVA-2020-DE-1847643

PATIENT
  Age: 79 Year
  Sex: Male

DRUGS (12)
  1. PANTOPRAZOL [Concomitant]
     Active Substance: PANTOPRAZOLE SODIUM
     Dosage: 40 MILLIGRAM DAILY; 1-0-0-0
     Route: 048
  2. PHENPROCOUMON [Concomitant]
     Active Substance: PHENPROCOUMON
     Dosage: 3 MG, BY VALUE
     Route: 048
  3. ATORVASTATIN [Concomitant]
     Active Substance: ATORVASTATIN
     Dosage: 40 MILLIGRAM DAILY; 0-0-1-0,
     Route: 048
  4. METOPROLOL. [Suspect]
     Active Substance: METOPROLOL
     Dosage: 95 MG, 1-0-0.5-0, SUSTAINED-RELEASE TABLETS
     Route: 048
  5. RAMIPRIL. [Concomitant]
     Active Substance: RAMIPRIL
     Dosage: 5 MILLIGRAM DAILY; 1-0-0-0,
  6. ISMN [Concomitant]
     Active Substance: ISOSORBIDE MONONITRATE
     Dosage: 20 MILLIGRAM DAILY; 1-0-0-0
     Route: 048
  7. EPLERENON [Concomitant]
     Active Substance: EPLERENONE
     Dosage: 50 MILLIGRAM DAILY; 1-0-0-0
     Route: 048
  8. MOLSIDOMIN [Concomitant]
     Active Substance: MOLSIDOMINE
     Dosage: 8 MILLIGRAM DAILY;  0-0-1-0,
     Route: 048
  9. INSULIN GLARGINE [Concomitant]
     Active Substance: INSULIN GLARGINE
     Dosage: 24 IU (INTERNATIONAL UNIT) DAILY;  0-0-0-1, AMPOULES
     Route: 058
  10. RANOLAZIN [Concomitant]
     Active Substance: RANOLAZINE
     Dosage: 1000 MILLIGRAM DAILY; 500 MG, 1-0-1-0, SUSTAINED-RELEASE TABLETS
     Route: 048
  11. INSULIN ASPART [Concomitant]
     Active Substance: INSULIN ASPART
     Dosage: NK MG, ACCORDING TO SCHEDULE, AMPOULES
     Route: 058
  12. TORASEMID [Concomitant]
     Active Substance: TORSEMIDE
     Dosage: 10 MILLIGRAM DAILY; 1-0-0-0,
     Route: 048

REACTIONS (4)
  - Pain [Unknown]
  - Musculoskeletal pain [Unknown]
  - Pain in extremity [Unknown]
  - Condition aggravated [Unknown]
